FAERS Safety Report 7441436-4 (Version None)
Quarter: 2011Q2

REPORT INFORMATION
  Report Type: 
  Country: None (occurrence: None)
  Receive Date: 20110428
  Receipt Date: 20110418
  Transmission Date: 20111010
  Serious: Yes (Hospitalization)
  Sender: FDA-Public Use
  Company Number: US-JNJFOC-20110408557

PATIENT
  Sex: Female

DRUGS (2)
  1. DURAGESIC [Suspect]
     Indication: PRODUCT USED FOR UNKNOWN INDICATION
     Route: 048
  2. DURAGESIC [Suspect]
     Route: 048

REACTIONS (5)
  - INJURY [None]
  - JOINT INJURY [None]
  - PULMONARY THROMBOSIS [None]
  - CARDIOVASCULAR DISORDER [None]
  - INTENTIONAL DRUG MISUSE [None]
